FAERS Safety Report 6285486-2 (Version None)
Quarter: 2009Q3

REPORT INFORMATION
  Report Type: 
  Country: None (occurrence: None)
  Receive Date: 20090716
  Receipt Date: 20080915
  Transmission Date: 20100115
  Serious: Yes (Hospitalization)
  Sender: FDA-Public Use
  Company Number: 2008BI021410

PATIENT
  Age: 65 Year
  Sex: Female
  Weight: 0.167 kg

DRUGS (2)
  1. AVONEX [Suspect]
     Indication: MULTIPLE SCLEROSIS
     Dosage: 30 UG;QW;IM
     Route: 030
     Dates: start: 20050101
  2. LEXAPRO (CON.) [Concomitant]

REACTIONS (1)
  - DYSPNOEA [None]
